FAERS Safety Report 6930729-2 (Version None)
Quarter: 2010Q3

REPORT INFORMATION
  Report Type: 
  Country: None (occurrence: None)
  Receive Date: 20100810
  Receipt Date: 20100322
  Transmission Date: 20110219
  Serious: Yes (Other)
  Sender: FDA-Public Use
  Company Number: 2010037410

PATIENT

DRUGS (2)
  1. FLAGYL [Suspect]
  2. DIFLUCAN [Suspect]

REACTIONS (2)
  - HYPERSENSITIVITY [None]
  - RASH [None]
